FAERS Safety Report 8999726 (Version 1)
Quarter: 2013Q1

REPORT INFORMATION
  Report Type: Spontaneous
  Country: DE (occurrence: DE)
  Receive Date: 20130102
  Receipt Date: 20130102
  Transmission Date: 20140127
  Serious: Yes (Hospitalization, Congenital Anomaly, Other)
  Sender: FDA-Public Use
  Company Number: DE-GLAXOSMITHKLINE-D0078278A

PATIENT
  Age: 0 Year
  Sex: Female
  Weight: 2.6 kg

DRUGS (2)
  1. PAROXETINE [Suspect]
     Indication: DEPRESSION
     Dosage: 40MG PER DAY
     Route: 064
  2. VALERIAN [Concomitant]
     Indication: SLEEP DISORDER
     Route: 064

REACTIONS (4)
  - Feeding disorder neonatal [Recovered/Resolved]
  - Foetal heart rate deceleration [Recovered/Resolved]
  - Crying [Recovered/Resolved]
  - Vomiting [Recovered/Resolved]
